FAERS Safety Report 13346983 (Version 4)
Quarter: 2017Q3

REPORT INFORMATION
  Report Type: Spontaneous
  Country: KR (occurrence: KR)
  Receive Date: 20170317
  Receipt Date: 20170728
  Transmission Date: 20171127
  Serious: Yes (Hospitalization, Other)
  Sender: FDA-Public Use
  Company Number: KR-009507513-1703KOR007959

PATIENT
  Age: 57 Year
  Sex: Male

DRUGS (48)
  1. EMEND (FOSAPREPITANT DIMEGLUMINE) [Suspect]
     Active Substance: FOSAPREPITANT DIMEGLUMINE
     Dosage: 150 MG, ONCE
     Route: 042
     Dates: start: 20160806, end: 20160806
  2. DOXORUBICIN HYDROCHLORIDE. [Concomitant]
     Active Substance: DOXORUBICIN HYDROCHLORIDE
     Indication: BLADDER TRANSITIONAL CELL CARCINOMA
     Dosage: 52 MG, QD,CYCLE 1
     Route: 042
     Dates: start: 20160705, end: 20160705
  3. DOXORUBICIN HYDROCHLORIDE. [Concomitant]
     Active Substance: DOXORUBICIN HYDROCHLORIDE
     Dosage: 56 MG, QD,CYCLE 4
     Route: 042
     Dates: start: 20161011, end: 20161011
  4. DEXAMETHASONE SODIUM PHOSPHATE. [Concomitant]
     Active Substance: DEXAMETHASONE SODIUM PHOSPHATE
     Indication: PROPHYLAXIS OF NAUSEA AND VOMITING
     Dosage: 12 MG,QD(STRENGTH: 5 MG/ML)
     Route: 042
     Dates: start: 20160705, end: 20160705
  5. DEXAMETHASONE SODIUM PHOSPHATE. [Concomitant]
     Active Substance: DEXAMETHASONE SODIUM PHOSPHATE
     Dosage: 12 MG,QD(STRENGTH: 5 MG/ML)
     Route: 042
     Dates: start: 20160911, end: 20160911
  6. DEXAMETHASONE. [Concomitant]
     Active Substance: DEXAMETHASONE
     Dosage: 8 MG, QD
     Route: 048
     Dates: start: 20160807, end: 20160811
  7. VINBLASTINE SULFATE. [Concomitant]
     Active Substance: VINBLASTINE SULFATE
     Dosage: 5.6 MG, QD,CYCLE 5
     Route: 042
     Dates: start: 20161108, end: 20161108
  8. GASTER [Concomitant]
     Active Substance: FAMOTIDINE
     Dosage: 1 TABLET, BID
     Route: 048
     Dates: start: 20161109, end: 20161110
  9. VINBLASTINE SULFATE. [Concomitant]
     Active Substance: VINBLASTINE SULFATE
     Indication: BLADDER TRANSITIONAL CELL CARCINOMA
     Dosage: 5 MG, QD,CYCLE 1
     Route: 042
     Dates: start: 20160705, end: 20160705
  10. VINBLASTINE SULFATE. [Concomitant]
     Active Substance: VINBLASTINE SULFATE
     Dosage: 5 MG, QD,CYCLE 3
     Route: 042
     Dates: start: 20160911, end: 20160911
  11. DEXAMETHASONE SODIUM PHOSPHATE. [Concomitant]
     Active Substance: DEXAMETHASONE SODIUM PHOSPHATE
     Dosage: 12 MG, QD (STRENGTH: 5 MG/ML)
     Route: 042
     Dates: start: 20160806, end: 20160806
  12. DEXAMETHASONE SODIUM PHOSPHATE. [Concomitant]
     Active Substance: DEXAMETHASONE SODIUM PHOSPHATE
     Dosage: 12 MG, QD (STRENGTH: 5 MG/ML)
     Route: 042
     Dates: start: 20161011, end: 20161011
  13. DEXAMETHASONE. [Concomitant]
     Active Substance: DEXAMETHASONE
     Dosage: 8 MG, QD
     Route: 048
     Dates: start: 20161109, end: 20161110
  14. ALOXI [Concomitant]
     Active Substance: PALONOSETRON HYDROCHLORIDE
     Dosage: 0.25 MG, QD
     Route: 042
     Dates: start: 20161108, end: 20161108
  15. DOXORUBICIN HYDROCHLORIDE. [Concomitant]
     Active Substance: DOXORUBICIN HYDROCHLORIDE
     Dosage: 52 MG, QD,CYCLE 2
     Route: 042
     Dates: start: 20160806, end: 20160806
  16. CISPLATIN. [Concomitant]
     Active Substance: CISPLATIN
     Indication: BLADDER TRANSITIONAL CELL CARCINOMA
     Dosage: 121 MG, QD, 50 MG,CYCLE 1
     Route: 042
     Dates: start: 20160705, end: 20160705
  17. CISPLATIN. [Concomitant]
     Active Substance: CISPLATIN
     Dosage: 121 MG, ONCE, STRENGTH: 50 MG/100 ML
     Route: 042
     Dates: start: 20160806, end: 20160806
  18. CISPLATIN. [Concomitant]
     Active Substance: CISPLATIN
     Dosage: 132 MG, ONCE, STRENGTH: 50 MG/100 ML
     Route: 042
     Dates: start: 20161011, end: 20161011
  19. DEXAMETHASONE SODIUM PHOSPHATE. [Concomitant]
     Active Substance: DEXAMETHASONE SODIUM PHOSPHATE
     Dosage: 12 MG, QD(STRENGTH: 5 MG/ML)
     Route: 042
     Dates: start: 20161108, end: 20161108
  20. DEXAMETHASONE. [Concomitant]
     Active Substance: DEXAMETHASONE
     Dosage: 8 MG, QD
     Route: 048
     Dates: start: 20161012, end: 20161013
  21. ALOXI [Concomitant]
     Active Substance: PALONOSETRON HYDROCHLORIDE
     Dosage: 0.25 MG, QD
     Route: 042
     Dates: start: 20160806, end: 20160806
  22. MANNITOL. [Concomitant]
     Active Substance: MANNITOL
     Dosage: 100 ML, QD
     Route: 042
     Dates: start: 20161108, end: 20161108
  23. CISPLATIN. [Concomitant]
     Active Substance: CISPLATIN
     Dosage: 128 MG, ONCE, STRENGTH: 50 MG/100 ML
     Route: 042
     Dates: start: 20160911, end: 20160911
  24. ALOXI [Concomitant]
     Active Substance: PALONOSETRON HYDROCHLORIDE
     Dosage: 0.25 MG, QD
     Route: 042
     Dates: start: 20161011, end: 20161011
  25. LYRICA [Concomitant]
     Active Substance: PREGABALIN
     Indication: PROPHYLAXIS
     Dosage: 1 DF, BID
     Route: 048
     Dates: start: 20160808
  26. OXYCONTIN [Concomitant]
     Active Substance: OXYCODONE HYDROCHLORIDE
     Indication: CANCER PAIN
     Dosage: 1 DF(1 TABLET), BID
     Route: 048
     Dates: start: 20160705, end: 20160705
  27. EMEND (FOSAPREPITANT DIMEGLUMINE) [Suspect]
     Active Substance: FOSAPREPITANT DIMEGLUMINE
     Indication: PROPHYLAXIS OF NAUSEA AND VOMITING
     Dosage: 150 MG, ONCE
     Route: 042
     Dates: start: 20160705, end: 20160705
  28. EMEND (FOSAPREPITANT DIMEGLUMINE) [Suspect]
     Active Substance: FOSAPREPITANT DIMEGLUMINE
     Dosage: 150 MG, ONCE
     Route: 042
     Dates: start: 20161108, end: 20161108
  29. CISPLATIN. [Concomitant]
     Active Substance: CISPLATIN
     Dosage: 132 MG, ONCE, STRENGTH: 50 MG/100 ML
     Route: 042
     Dates: start: 20161108, end: 20161108
  30. ALOXI [Concomitant]
     Active Substance: PALONOSETRON HYDROCHLORIDE
     Dosage: 0.25 MG, QD
     Route: 042
     Dates: start: 20160911, end: 20160911
  31. MANNITOL. [Concomitant]
     Active Substance: MANNITOL
     Indication: PROPHYLAXIS
     Dosage: 100 ML, QD
     Route: 042
     Dates: start: 20160705, end: 20160705
  32. MANNITOL. [Concomitant]
     Active Substance: MANNITOL
     Dosage: 100 ML, QD
     Route: 042
     Dates: start: 20160911, end: 20160911
  33. EMEND (FOSAPREPITANT DIMEGLUMINE) [Suspect]
     Active Substance: FOSAPREPITANT DIMEGLUMINE
     Dosage: 150 MG, ONCE
     Route: 042
     Dates: start: 20160911, end: 20160911
  34. EMEND (FOSAPREPITANT DIMEGLUMINE) [Suspect]
     Active Substance: FOSAPREPITANT DIMEGLUMINE
     Dosage: 150 MG, ONCE
     Route: 042
     Dates: start: 20161011, end: 20161011
  35. VINBLASTINE SULFATE. [Concomitant]
     Active Substance: VINBLASTINE SULFATE
     Dosage: 5.6 MG, QD,CYCLE 4
     Route: 042
     Dates: start: 20161011, end: 20161011
  36. DOXORUBICIN HYDROCHLORIDE. [Concomitant]
     Active Substance: DOXORUBICIN HYDROCHLORIDE
     Dosage: 56 MG, QD,CYCLE 5
     Route: 042
     Dates: start: 20161108, end: 20161108
  37. MANNITOL. [Concomitant]
     Active Substance: MANNITOL
     Dosage: 100 ML, QD
     Route: 042
     Dates: start: 20160806, end: 20160806
  38. MANNITOL. [Concomitant]
     Active Substance: MANNITOL
     Dosage: 100 ML, QD
     Route: 042
     Dates: start: 20161011, end: 20161011
  39. GASTER [Concomitant]
     Active Substance: FAMOTIDINE
     Indication: GASTROOESOPHAGEAL REFLUX PROPHYLAXIS
     Dosage: 1 TABLET, BID
     Route: 048
     Dates: start: 20160707, end: 20160707
  40. IRCODON [Concomitant]
     Active Substance: OXYCODONE HYDROCHLORIDE
     Indication: CANCER PAIN
     Dosage: 1 TABLET, 4 TIMES A DAY
     Route: 048
     Dates: start: 20160705
  41. VINBLASTINE SULFATE. [Concomitant]
     Active Substance: VINBLASTINE SULFATE
     Dosage: 5 MG, QD,CYCLE 2
     Route: 042
     Dates: start: 20160806, end: 20160806
  42. DOXORUBICIN HYDROCHLORIDE. [Concomitant]
     Active Substance: DOXORUBICIN HYDROCHLORIDE
     Dosage: 54 MG, QD,CYCLE 3
     Route: 042
     Dates: start: 20160911, end: 20160911
  43. DEXAMETHASONE. [Concomitant]
     Active Substance: DEXAMETHASONE
     Indication: PROPHYLAXIS OF NAUSEA AND VOMITING
     Dosage: 8 MG, QD
     Route: 048
     Dates: start: 20160706, end: 20160707
  44. ALOXI [Concomitant]
     Active Substance: PALONOSETRON HYDROCHLORIDE
     Indication: PROPHYLAXIS OF NAUSEA AND VOMITING
     Dosage: 5 ML, QD
     Route: 042
     Dates: start: 20160705, end: 20160705
  45. APETROL ES [Concomitant]
     Indication: PROPHYLAXIS
     Dosage: 650 MG, QD
     Route: 048
     Dates: start: 20160705
  46. BISACODYL. [Concomitant]
     Active Substance: BISACODYL
     Indication: CONSTIPATION PROPHYLAXIS
     Dosage: 1 TABLET, BID
     Route: 048
     Dates: start: 20161107
  47. GASTER [Concomitant]
     Active Substance: FAMOTIDINE
     Dosage: 1 TABLET, BID
     Route: 048
     Dates: start: 20161012, end: 20161013
  48. LYRICA [Concomitant]
     Active Substance: PREGABALIN
     Indication: PROPHYLAXIS
     Dosage: 1 TABLET, BID
     Route: 048
     Dates: start: 20160705, end: 20160705

REACTIONS (4)
  - Shock [Recovered/Resolved]
  - Hypoalbuminaemia [Recovered/Resolved]
  - Febrile neutropenia [Recovered/Resolved]
  - Diarrhoea [Recovered/Resolved]

NARRATIVE: CASE EVENT DATE: 20160717
